FAERS Safety Report 12710229 (Version 2)
Quarter: 2019Q2

REPORT INFORMATION
  Report Type: Report from Study
  Country: PK (occurrence: PK)
  Receive Date: 20160902
  Receipt Date: 20190413
  Transmission Date: 20190711
  Serious: Yes (Death, Other)
  Sender: FDA-Public Use
  Company Number: PHHY2016PK117317

PATIENT
  Age: 22 Year
  Sex: Male
  Weight: 56 kg

DRUGS (3)
  1. TASIGNA [Suspect]
     Active Substance: NILOTINIB
     Dosage: 800 MG, BID
     Route: 048
     Dates: start: 20141231
  2. TASIGNA [Suspect]
     Active Substance: NILOTINIB
     Indication: CHRONIC MYELOID LEUKAEMIA
     Dosage: 2 DF (200 MG), BID
     Route: 048
     Dates: start: 20121119
  3. TASIGNA [Suspect]
     Active Substance: NILOTINIB
     Dosage: 2 DF (200 MG), BID
     Route: 048

REACTIONS (6)
  - Malignant neoplasm progression [Fatal]
  - Splenomegaly [Not Recovered/Not Resolved]
  - Platelet count decreased [Unknown]
  - Haemoglobin decreased [Unknown]
  - White blood cell count increased [Unknown]
  - Chronic myeloid leukaemia [Fatal]

NARRATIVE: CASE EVENT DATE: 20160806
